FAERS Safety Report 9097486 (Version 1)
Quarter: 2013Q1

REPORT INFORMATION
  Report Type: Report from Study
  Country: CA (occurrence: CA)
  Receive Date: 20130212
  Receipt Date: 20130212
  Transmission Date: 20140127
  Serious: Yes (Other)
  Sender: FDA-Public Use
  Company Number: CA-JNJFOC-20130201735

PATIENT
  Sex: Female
  Weight: 73.5 kg

DRUGS (12)
  1. REMICADE [Suspect]
     Indication: COLITIS ULCERATIVE
     Route: 042
     Dates: start: 20090304
  2. REMICADE [Suspect]
     Indication: COLITIS ULCERATIVE
     Dosage: 28TH INFUSION
     Route: 042
     Dates: start: 20121210
  3. HYDROCORTISONE [Concomitant]
     Route: 065
  4. BIRTH CONTROL PILLS [Concomitant]
     Route: 065
  5. CALCIUM [Concomitant]
     Route: 065
  6. VITAMIN D [Concomitant]
     Route: 065
  7. MAGNESIUM [Concomitant]
     Route: 065
  8. IRON [Concomitant]
     Route: 065
  9. CELEXA [Concomitant]
     Route: 065
  10. CIPRALEX [Concomitant]
     Route: 065
  11. PROBIOTIC [Concomitant]
     Route: 065
  12. VITAMINS NOS [Concomitant]
     Route: 065

REACTIONS (2)
  - Rectal haemorrhage [Recovered/Resolved]
  - Influenza [Recovered/Resolved]
